FAERS Safety Report 7004698-3 (Version None)
Quarter: 2010Q3

REPORT INFORMATION
  Report Type: 
  Country: None (occurrence: None)
  Receive Date: 20100921
  Receipt Date: 20100910
  Transmission Date: 20110219
  Serious: Yes (Hospitalization)
  Sender: FDA-Public Use
  Company Number: PHHY2010CO60394

PATIENT
  Age: 78 Year
  Sex: Female

DRUGS (7)
  1. ACLASTA [Suspect]
     Indication: OSTEOPOROSIS
     Dosage: 5 MG/100 ML/ YEAR
     Route: 042
     Dates: start: 20100902
  2. ACLASTA [Suspect]
     Indication: OSTEITIS DEFORMANS
  3. TARKA [Concomitant]
     Dosage: 180/2 MGS PER DAY
  4. OLMETEC [Concomitant]
     Indication: HYPERTENSION
     Dosage: 20 MG PER DAY
  5. METOPROLOL [Concomitant]
  6. DOLEX [Concomitant]
     Indication: MYALGIA
  7. CALCIUM [Concomitant]
     Dosage: 1200 MG PER DAY

REACTIONS (4)
  - DIZZINESS [None]
  - SYNCOPE [None]
  - TACHYCARDIA [None]
  - VOMITING [None]
